FAERS Safety Report 4310691-1 (Version None)
Quarter: 2004Q1

REPORT INFORMATION
  Report Type: 
  Country: None (occurrence: None)
  Receive Date: 20040302
  Receipt Date: 20040226
  Transmission Date: 20041129
  Serious: Yes (Other)
  Sender: FDA-Public Use
  Company Number: 200410074BYL

PATIENT

DRUGS (2)
  1. CIPROXAN IV (CIPROFLOXACIN) [Suspect]
     Route: 042
  2. CARBENIN [Concomitant]

REACTIONS (1)
  - GASTROENTERITIS STAPHYLOCOCCAL [None]
